FAERS Safety Report 16929453 (Version 1)
Quarter: 2019Q4

REPORT INFORMATION
  Report Type: Spontaneous
  Country: US (occurrence: US)
  Receive Date: 20190826
  Receipt Date: 20190826
  Transmission Date: 20200122
  Serious: Yes (Hospitalization)
  Sender: FDA-Public Use
  Company Number: None

PATIENT
  Age: 77 Year
  Sex: Male

DRUGS (16)
  1. CARVEDILOL. [Concomitant]
     Active Substance: CARVEDILOL
  2. LOSARTAN POT [Concomitant]
     Active Substance: LOSARTAN POTASSIUM
  3. VENLAFAXINE [Concomitant]
     Active Substance: VENLAFAXINE HYDROCHLORIDE
  4. ZOLPIDEM [Concomitant]
     Active Substance: ZOLPIDEM TARTRATE
  5. ESBRIET [Suspect]
     Active Substance: PIRFENIDONE
     Indication: IDIOPATHIC PULMONARY FIBROSIS
     Route: 048
     Dates: start: 20190507
  6. BASAGLAR [Concomitant]
     Active Substance: INSULIN GLARGINE
  7. VIT D [Concomitant]
     Active Substance: VITAMIN D NOS
  8. BUMETANIDINE [Concomitant]
  9. HYDROXYZ [Concomitant]
     Active Substance: HYDROXYZINE HYDROCHLORIDE
  10. ISOSORB MONO [Concomitant]
     Active Substance: ISOSORBIDE MONONITRATE
  11. SODIUM BICAR [Concomitant]
  12. AMITRIPITYLIN [Concomitant]
  13. ATORVASTATIN [Concomitant]
     Active Substance: ATORVASTATIN
  14. DIGOX [Concomitant]
     Active Substance: DIGOXIN
  15. FUROSEMIDE. [Concomitant]
     Active Substance: FUROSEMIDE
  16. GLIPIZIDE. [Concomitant]
     Active Substance: GLIPIZIDE

REACTIONS (1)
  - Endoscopy [None]

NARRATIVE: CASE EVENT DATE: 201908
